FAERS Safety Report 6958337-8 (Version None)
Quarter: 2010Q3

REPORT INFORMATION
  Report Type: 
  Country: None (occurrence: None)
  Receive Date: 20100831
  Receipt Date: 20100823
  Transmission Date: 20110219
  Serious: Yes (Other)
  Sender: FDA-Public Use
  Company Number: B0671912A

PATIENT
  Age: 61 Year
  Sex: Female

DRUGS (1)
  1. ALKERAN [Suspect]
     Dosage: 200MGM2 PER DAY
     Route: 042

REACTIONS (1)
  - HEPATITIS B [None]
